FAERS Safety Report 11743961 (Version 3)
Quarter: 2015Q4

REPORT INFORMATION
  Report Type: Spontaneous
  Country: IT (occurrence: IT)
  Receive Date: 20151116
  Receipt Date: 20151210
  Transmission Date: 20160304
  Serious: Yes (Hospitalization)
  Sender: FDA-Public Use
  Company Number: IT-SA-2015SA104605

PATIENT
  Age: 50 Year
  Sex: Male

DRUGS (5)
  1. HYDROCHLOROTHIAZIDE/IRBESARTAN [Concomitant]
  2. AUBAGIO [Suspect]
     Active Substance: TERIFLUNOMIDE
     Indication: MULTIPLE SCLEROSIS
     Route: 048
     Dates: start: 20150515, end: 20151130
  3. LAROXYL [Concomitant]
     Active Substance: AMITRIPTYLINE
     Dosage: 40MG/ML ORAL DROPS, DOSE: 4 DROPS
     Route: 048
  4. LYRICA [Concomitant]
     Active Substance: PREGABALIN
     Route: 048
  5. LYRICA [Concomitant]
     Active Substance: PREGABALIN
     Route: 048

REACTIONS (4)
  - Acute myocardial infarction [Unknown]
  - Hyperhidrosis [Recovered/Resolved]
  - Acute coronary syndrome [Recovered/Resolved]
  - Chest pain [Recovered/Resolved]

NARRATIVE: CASE EVENT DATE: 20150618
